FAERS Safety Report 7421612-7 (Version None)
Quarter: 2011Q2

REPORT INFORMATION
  Report Type: 
  Country: None (occurrence: None)
  Receive Date: 20110418
  Receipt Date: 20110412
  Transmission Date: 20111010
  Serious: Yes (Other)
  Sender: FDA-Public Use
  Company Number: FR-GENZYME-THYM-1002404

PATIENT

DRUGS (14)
  1. THYMOGLOBULIN [Suspect]
     Indication: PROPHYLAXIS AGAINST TRANSPLANT REJECTION
     Dosage: 1 MG/KG, QD
     Dates: end: 20090326
  2. BACTRIM [Concomitant]
     Indication: PROPHYLAXIS
     Dosage: UNK
  3. VALGANCICLOVIR [Concomitant]
     Indication: ANTIVIRAL PROPHYLAXIS
     Dosage: 900 MG, QD
  4. CELLCEPT [Concomitant]
     Indication: PROPHYLAXIS AGAINST TRANSPLANT REJECTION
     Dosage: 2 G, QD
  5. PREDNISONE [Concomitant]
     Indication: PROPHYLAXIS AGAINST TRANSPLANT REJECTION
     Dosage: 500 MG, ONCE
  6. PREDNISONE [Concomitant]
     Dosage: 250 MG, ONCE
  7. PREDNISONE [Concomitant]
     Dosage: 60 MG, QD
  8. RED BLOOD CELLS [Concomitant]
     Indication: PRODUCT USED FOR UNKNOWN INDICATION
  9. PREDNISONE [Concomitant]
     Dosage: 120 MG, ONCE
  10. PLATELETS [Concomitant]
     Indication: PRODUCT USED FOR UNKNOWN INDICATION
  11. PROGRAF [Concomitant]
     Indication: PROPHYLAXIS AGAINST TRANSPLANT REJECTION
     Dosage: UNK
     Route: 048
  12. PREDNISONE [Concomitant]
     Dosage: 10 MG, UNK
  13. VANCOMYCIN HCL [Concomitant]
     Indication: PROPHYLAXIS
     Dosage: UNK
  14. CLAFORAN [Concomitant]
     Indication: PROPHYLAXIS
     Dosage: UNK

REACTIONS (3)
  - TRANSPLANT REJECTION [None]
  - LUNG INFECTION PSEUDOMONAL [None]
  - ACUTE RESPIRATORY DISTRESS SYNDROME [None]
